FAERS Safety Report 13344876 (Version 10)
Quarter: 2019Q1

REPORT INFORMATION
  Report Type: Spontaneous
  Country: US (occurrence: US)
  Receive Date: 20170317
  Receipt Date: 20190110
  Transmission Date: 20190417
  Serious: Yes (Death, Life-Threatening, Hospitalization, Other)
  Sender: FDA-Public Use
  Company Number: US-ACTELION-A-NJ2017-150768

PATIENT
  Age: 62 Year
  Sex: Female

DRUGS (16)
  1. GABAPENTIN. [Concomitant]
     Active Substance: GABAPENTIN
     Dosage: 100 MG, 6 CAPSULES PO QHS
     Route: 048
  2. VANCOMYCIN [Concomitant]
     Active Substance: VANCOMYCIN
  3. ADCIRCA [Suspect]
     Active Substance: TADALAFIL
     Dosage: 20 MG, QD
     Route: 048
  4. TRACLEER [Suspect]
     Active Substance: BOSENTAN
     Indication: PULMONARY ARTERIAL HYPERTENSION
     Dosage: 125 MG, BID
     Route: 048
     Dates: start: 200702, end: 20181112
  5. PRADAXA [Concomitant]
     Active Substance: DABIGATRAN ETEXILATE MESYLATE
     Dosage: 150 MG, BID
     Route: 048
     Dates: start: 201701
  6. TRACLEER [Suspect]
     Active Substance: BOSENTAN
     Dosage: 125 MG, BID
     Route: 048
     Dates: start: 20180706
  7. REMODULIN [Suspect]
     Active Substance: TREPROSTINIL
     Indication: PRODUCT USED FOR UNKNOWN INDICATION
     Dosage: 122 NG/KG, PER MIN
     Route: 042
     Dates: start: 200910
  8. FUROSEMIDE. [Concomitant]
     Active Substance: FUROSEMIDE
     Dosage: 20 MG, 3 TABLETS PO QAM AND QPM
     Route: 048
  9. AMIODARONE [Concomitant]
     Active Substance: AMIODARONE
  10. ADCIRCA [Suspect]
     Active Substance: TADALAFIL
     Indication: PRODUCT USED FOR UNKNOWN INDICATION
     Dosage: 40 MG, QD
     Route: 048
     Dates: start: 20110510
  11. TORSEMIDE. [Concomitant]
     Active Substance: TORSEMIDE
     Dosage: 25 MG, BID
  12. OXYCODONE [Concomitant]
     Active Substance: OXYCODONE
     Dosage: 5 MG, 1 TO 2 TABLETS PO Q4H PRN
  13. FLUCONAZOLE. [Concomitant]
     Active Substance: FLUCONAZOLE
  14. POTASSIUM CHLORIDE. [Concomitant]
     Active Substance: POTASSIUM CHLORIDE
     Dosage: 20 MEQ, BID
     Route: 048
  15. FUROSEMIDE. [Concomitant]
     Active Substance: FUROSEMIDE
     Dosage: 25 MG, BID
  16. ZOSYN [Concomitant]
     Active Substance: PIPERACILLIN SODIUM\TAZOBACTAM SODIUM

REACTIONS (40)
  - Hypoxia [Recovering/Resolving]
  - Coccidioidomycosis [Unknown]
  - Pneumonia [Recovering/Resolving]
  - Dyspnoea [Unknown]
  - Escherichia urinary tract infection [Recovering/Resolving]
  - Anuria [Recovering/Resolving]
  - Hypotension [Recovering/Resolving]
  - Cardiac failure congestive [Unknown]
  - Fall [Unknown]
  - Subdural haematoma [Unknown]
  - Acute respiratory failure [Unknown]
  - Pulmonary embolism [Recovering/Resolving]
  - Vascular device infection [Recovering/Resolving]
  - Blood gases abnormal [Recovering/Resolving]
  - Alanine aminotransferase increased [Unknown]
  - Lung infiltration [Unknown]
  - Chest pain [Recovering/Resolving]
  - Decubitus ulcer [Unknown]
  - Fluid overload [Recovering/Resolving]
  - Craniocerebral injury [Fatal]
  - Pulmonary oedema [Recovering/Resolving]
  - Polyuria [Recovering/Resolving]
  - Thrombocytopenia [Recovering/Resolving]
  - Haemodynamic instability [Recovering/Resolving]
  - Haemorrhage intracranial [Fatal]
  - Pulmonary hypertension [Unknown]
  - White blood cell count increased [Recovering/Resolving]
  - Dysphagia [Recovering/Resolving]
  - Blood culture negative [Unknown]
  - Pulmonary congestion [Unknown]
  - Staphylococcal infection [Recovering/Resolving]
  - Acute kidney injury [Recovering/Resolving]
  - Asthenia [Recovering/Resolving]
  - Aspartate aminotransferase increased [Unknown]
  - Blood alkaline phosphatase increased [Unknown]
  - Cardiomegaly [Unknown]
  - Respiratory failure [Recovering/Resolving]
  - Depression [Unknown]
  - Subdural haemorrhage [Unknown]
  - Atrial tachycardia [Unknown]

NARRATIVE: CASE EVENT DATE: 20170205
